FAERS Safety Report 8130178-8 (Version None)
Quarter: 2012Q1

REPORT INFORMATION
  Report Type: 
  Country: None (occurrence: None)
  Receive Date: 20120210
  Receipt Date: 20120202
  Transmission Date: 20120608
  Serious: Yes (Hospitalization, Other)
  Sender: FDA-Public Use
  Company Number: US-ELI_LILLY_AND_COMPANY-US201110004491

PATIENT
  Sex: Female

DRUGS (6)
  1. DRUG USED IN DIABETES [Concomitant]
     Dosage: UNK, UNKNOWN
  2. COREG [Concomitant]
     Indication: CARDIOMYOPATHY
     Dosage: UNK, UNKNOWN
  3. BYETTA [Suspect]
     Indication: DIABETES MELLITUS
     Dosage: UNK, UNKNOWN
  4. ALDACTONE [Concomitant]
     Dosage: UNK, UNKNOWN
  5. NEATENOL [Concomitant]
     Dosage: UNK, UNKNOWN
  6. ANTIHYPERTENSIVES [Concomitant]
     Dosage: UNK, UNKNOWN

REACTIONS (5)
  - HYPERHIDROSIS [None]
  - ABDOMINAL PAIN [None]
  - NON-CARDIAC CHEST PAIN [None]
  - NAUSEA [None]
  - PANCREATITIS [None]
